FAERS Safety Report 14085520 (Version 4)
Quarter: 2017Q4

REPORT INFORMATION
  Report Type: Spontaneous
  Country: US (occurrence: US)
  Receive Date: 20171013
  Receipt Date: 20171222
  Transmission Date: 20180321
  Serious: No
  Sender: FDA-Public Use
  Company Number: US-BIOGEN-2017BI00469681

PATIENT
  Age: 51 Year
  Sex: Female

DRUGS (1)
  1. SPINRAZA [Suspect]
     Active Substance: NUSINERSEN
     Indication: SPINAL MUSCULAR ATROPHY
     Dosage: 12 MG/5ML
     Route: 065
     Dates: start: 20170801

REACTIONS (6)
  - Neuralgia [Unknown]
  - Procedural pain [Unknown]
  - Flank pain [Unknown]
  - Muscle spasms [Unknown]
  - Constipation [Unknown]
  - Back pain [Unknown]

NARRATIVE: CASE EVENT DATE: 20170801
